FAERS Safety Report 25869730 (Version 1)
Quarter: 2025Q4

REPORT INFORMATION
  Report Type: Spontaneous
  Country: US (occurrence: US)
  Receive Date: 20251001
  Receipt Date: 20251001
  Transmission Date: 20260118
  Serious: No
  Sender: ALEXION PHARMACEUTICALS
  Company Number: US-AstraZeneca-CH-00942623AP

PATIENT
  Age: 60 Year
  Sex: Female

DRUGS (1)
  1. BREZTRI [Suspect]
     Active Substance: BUDESONIDE\FORMOTEROL\GLYCOPYRROLATE
     Indication: Chronic obstructive pulmonary disease
     Dosage: 160 MICROGRAM

REACTIONS (7)
  - Device use issue [Unknown]
  - Product dose omission issue [Unknown]
  - Off label use [Unknown]
  - Device delivery system issue [Unknown]
  - Product use issue [Unknown]
  - Product dose omission issue [Unknown]
  - Dyspnoea [Unknown]
